FAERS Safety Report 6236390-7 (Version None)
Quarter: 2009Q2

REPORT INFORMATION
  Report Type: 
  Country: None (occurrence: None)
  Receive Date: 20090619
  Receipt Date: 20090604
  Transmission Date: 20091009
  Serious: Yes (Hospitalization)
  Sender: FDA-Public Use
  Company Number: IT-GENENTECH-284363

PATIENT
  Sex: Male

DRUGS (6)
  1. BEVACIZUMAB [Suspect]
     Indication: PLEURAL MESOTHELIOMA MALIGNANT
     Dosage: 1100 MG, Q3W
     Route: 042
     Dates: start: 20090206
  2. CARBOPLATIN [Suspect]
     Indication: PLEURAL MESOTHELIOMA MALIGNANT
     Dosage: 570 MG, Q3W
     Route: 042
     Dates: start: 20090206
  3. PEMETREXED [Concomitant]
     Indication: DRUG USE FOR UNKNOWN INDICATION
     Dosage: 300 MG, Q3W
  4. RABEPRAZOLE SODIUM [Concomitant]
     Indication: DRUG USE FOR UNKNOWN INDICATION
  5. MORPHINE [Concomitant]
     Indication: DRUG USE FOR UNKNOWN INDICATION
  6. PREGABALIN [Concomitant]
     Indication: DRUG USE FOR UNKNOWN INDICATION

REACTIONS (4)
  - ATRIAL FIBRILLATION [None]
  - CHEST PAIN [None]
  - CONFUSIONAL STATE [None]
  - PERFORMANCE STATUS DECREASED [None]
